FAERS Safety Report 24396660 (Version 2)
Quarter: 2024Q4

REPORT INFORMATION
  Report Type: Spontaneous
  Country: IT (occurrence: IT)
  Receive Date: 20241004
  Receipt Date: 20241015
  Transmission Date: 20250115
  Serious: Yes (Other)
  Sender: GENMAB
  Company Number: IT-ABBVIE-5947967

PATIENT
  Age: 30 Year
  Sex: Female

DRUGS (1)
  1. EPCORITAMAB [Suspect]
     Active Substance: EPCORITAMAB
     Indication: Product used for unknown indication
     Dosage: UNK (FREQUENCY TEXT: NOT REPORTED, START DATE TEXT: NOT REPORTED, STOP DATE TEXT: NOT REPORTED)
     Route: 058

REACTIONS (1)
  - Immune effector cell-associated neurotoxicity syndrome [Recovered/Resolved]
